FAERS Safety Report 8196549-9 (Version None)
Quarter: 2012Q1

REPORT INFORMATION
  Report Type: 
  Country: None (occurrence: None)
  Receive Date: 20120309
  Receipt Date: 20120229
  Transmission Date: 20120608
  Serious: Yes (Other)
  Sender: FDA-Public Use
  Company Number: US-BRISTOL-MYERS SQUIBB COMPANY-16425332

PATIENT
  Age: 60 Year
  Sex: Female

DRUGS (11)
  1. EFFEXOR [Concomitant]
  2. ATENOLOL [Concomitant]
  3. LISINOPRIL [Concomitant]
  4. RESTASIS [Concomitant]
  5. RHINOCORT [Concomitant]
  6. BUSPIRONE HCL [Concomitant]
  7. CLONAZEPAM [Concomitant]
  8. BENTYL [Concomitant]
  9. NEXIUM [Concomitant]
  10. PRAVACHOL [Suspect]
     Dosage: 3YRS AGO
  11. ATROVENT [Concomitant]

REACTIONS (2)
  - NAUSEA [None]
  - ARTHROPATHY [None]
